FAERS Safety Report 4707595-9 (Version None)
Quarter: 2005Q3

REPORT INFORMATION
  Report Type: 
  Country: None (occurrence: None)
  Receive Date: 20050705
  Receipt Date: 20050620
  Transmission Date: 20060218
  Serious: Yes (Disabling)
  Sender: FDA-Public Use
  Company Number: GB-2005-008590

PATIENT
  Age: 31 Year
  Sex: Female

DRUGS (2)
  1. YASMIN [Suspect]
     Indication: ORAL CONTRACEPTION
     Dosage: 1X/DAY ORAL
     Route: 048
     Dates: start: 20020620, end: 20050501
  2. SALBUTAMOL [Concomitant]

REACTIONS (4)
  - DEHYDRATION [None]
  - DEPRESSION [None]
  - DERMAL CYST [None]
  - FATIGUE [None]
